FAERS Safety Report 22534506 (Version 1)
Quarter: 2023Q2

REPORT INFORMATION
  Report Type: Spontaneous
  Country: US (occurrence: US)
  Receive Date: 20230608
  Receipt Date: 20230608
  Transmission Date: 20230722
  Serious: Yes (Hospitalization, Other)
  Sender: FDA-Public Use
  Company Number: US-BIOGEN-2023BI01208971

PATIENT
  Sex: Female

DRUGS (1)
  1. VUMERITY [Suspect]
     Active Substance: DIROXIMEL FUMARATE
     Indication: Product used for unknown indication
     Route: 050

REACTIONS (11)
  - Fall [Recovered/Resolved]
  - Mobility decreased [Unknown]
  - Sepsis [Unknown]
  - Urinary tract infection [Unknown]
  - Cellulitis [Unknown]
  - Pneumonia [Unknown]
  - Asthenia [Unknown]
  - Oxygen saturation decreased [Unknown]
  - Visual impairment [Unknown]
  - Central nervous system lesion [Unknown]
  - Decreased appetite [Unknown]
